FAERS Safety Report 4773563-4 (Version None)
Quarter: 2005Q3

REPORT INFORMATION
  Report Type: 
  Country: None (occurrence: None)
  Receive Date: 20050920
  Receipt Date: 20050503
  Transmission Date: 20060218
  Serious: No
  Sender: FDA-Public Use
  Company Number: US-BRISTOL-MYERS SQUIBB COMPANY-12953980

PATIENT
  Age: 38 Year
  Sex: Male

DRUGS (1)
  1. BUSPAR [Suspect]

REACTIONS (1)
  - HALLUCINATION [None]
